FAERS Safety Report 10969337 (Version 1)
Quarter: 2015Q1

REPORT INFORMATION
  Report Type: Spontaneous
  Country: GB (occurrence: GB)
  Receive Date: 20150331
  Receipt Date: 20150331
  Transmission Date: 20150721
  Serious: Yes (Other)
  Sender: FDA-Public Use
  Company Number: GB-TEVA-549728ACC

PATIENT
  Age: 43 Year
  Sex: Male
  Weight: 75 kg

DRUGS (3)
  1. FLUOXETINE [Concomitant]
     Active Substance: FLUOXETINE\FLUOXETINE HYDROCHLORIDE
     Dosage: 40 MILLIGRAM DAILY;
     Dates: start: 20140115
  2. DOXYCYCLINE. [Suspect]
     Active Substance: DOXYCYCLINE
     Dosage: TWO NOW THEN ONE DAILY
     Dates: start: 20150310
  3. AMITRIPTYLINE HYDROCHLORIDE. [Concomitant]
     Active Substance: AMITRIPTYLINE HYDROCHLORIDE
     Dosage: TAKE ONE-TWO AT NIGHT IF NEEDED
     Dates: start: 20150113, end: 20150310

REACTIONS (2)
  - Anxiety [Unknown]
  - Rash [Unknown]

NARRATIVE: CASE EVENT DATE: 20150312
